FAERS Safety Report 5518911-2 (Version None)
Quarter: 2007Q4

REPORT INFORMATION
  Report Type: 
  Country: None (occurrence: None)
  Receive Date: 20071114
  Receipt Date: 20071106
  Transmission Date: 20080405
  Serious: Yes (Death, Life-Threatening)
  Sender: FDA-Public Use
  Company Number: CLOF-10701

PATIENT
  Age: 73 Year
  Sex: Male
  Weight: 95.709 kg

DRUGS (8)
  1. CLOFARABINE. MFR: GENZYME [Suspect]
     Indication: ACUTE MYELOID LEUKAEMIA
     Dosage: 15 MG QD X 5 IV
     Route: 042
     Dates: start: 20070921, end: 20070925
  2. CADUET [Concomitant]
  3. METFORMIN HCL [Concomitant]
  4. COUMADIN [Concomitant]
  5. ACTOS [Concomitant]
  6. POTASSIUM GLUCONATE TAB [Concomitant]
  7. ASCENSIA MICROFILM STRIPS [Concomitant]
  8. LANCETS [Concomitant]

REACTIONS (15)
  - ATRIAL FIBRILLATION [None]
  - BACTERIAL INFECTION [None]
  - BLOOD CREATINE PHOSPHOKINASE INCREASED [None]
  - BLOOD CREATININE INCREASED [None]
  - BRAIN ABSCESS [None]
  - BRONCHIAL HAEMORRHAGE [None]
  - CANDIDA PNEUMONIA [None]
  - CARDIAC FAILURE CONGESTIVE [None]
  - CONTINUOUS HAEMODIAFILTRATION [None]
  - FEBRILE NEUTROPENIA [None]
  - GASTRIC HAEMORRHAGE [None]
  - HYPOTENSION [None]
  - NO THERAPEUTIC RESPONSE [None]
  - PNEUMONIA FUNGAL [None]
  - SEPTIC SHOCK [None]
